FAERS Safety Report 8474045-9 (Version None)
Quarter: 2012Q2

REPORT INFORMATION
  Report Type: 
  Country: None (occurrence: None)
  Receive Date: 20120628
  Receipt Date: 20120607
  Transmission Date: 20120825
  Serious: Yes (Other)
  Sender: FDA-Public Use
  Company Number: US-MYLANLABS-2012S1008804

PATIENT
  Age: 14 Year
  Sex: Female

DRUGS (5)
  1. ABILIFY [Concomitant]
  2. CHLORPROMAZINE HCL [Concomitant]
  3. LUTERA [Concomitant]
  4. CITALOPRAM HYDROBROMIDE [Concomitant]
  5. CLOZAPINE [Suspect]
     Route: 048
     Dates: start: 20120412, end: 20120502

REACTIONS (2)
  - LEUKOPENIA [None]
  - GRANULOCYTOPENIA [None]
